FAERS Safety Report 12522470 (Version 1)
Quarter: 2016Q3

REPORT INFORMATION
  Report Type: Spontaneous
  Country: MA (occurrence: MA)
  Receive Date: 20160701
  Receipt Date: 20160701
  Transmission Date: 20161109
  Serious: Yes (Other)
  Sender: FDA-Public Use
  Company Number: ALCN2016MA004391

PATIENT
  Age: 61 Year
  Sex: Male

DRUGS (2)
  1. MAXIDEX [Suspect]
     Active Substance: DEXAMETHASONE
     Dosage: UNK
     Route: 047
  2. MAXIDEX [Suspect]
     Active Substance: DEXAMETHASONE
     Indication: EYE PAIN
     Dosage: 1 GTT, TID
     Route: 047

REACTIONS (7)
  - Headache [Unknown]
  - Drug ineffective [Unknown]
  - Condition aggravated [Unknown]
  - Ophthalmic herpes simplex [Unknown]
  - Visual acuity reduced [Unknown]
  - Corneal defect [Unknown]
  - Eye pain [Unknown]

NARRATIVE: CASE EVENT DATE: 201412
